FAERS Safety Report 7386940-2 (Version None)
Quarter: 2011Q1

REPORT INFORMATION
  Report Type: 
  Country: None (occurrence: None)
  Receive Date: 20110331
  Receipt Date: 20110325
  Transmission Date: 20110831
  Serious: Yes (Hospitalization, Other)
  Sender: FDA-Public Use
  Company Number: US-JNJFOC-20100702297

PATIENT
  Sex: Female

DRUGS (5)
  1. METHYLPREDNISOLONE ACETATE [Suspect]
     Route: 065
  2. METHYLPREDNISOLONE ACETATE [Suspect]
     Indication: MIGRAINE
     Route: 065
  3. LEVAQUIN [Suspect]
     Indication: INFECTION
     Route: 048
  4. PREDNISONE [Suspect]
     Indication: INFECTION
     Route: 065
  5. LEVAQUIN [Suspect]
     Indication: PRODUCT USED FOR UNKNOWN INDICATION
     Route: 048

REACTIONS (5)
  - ROTATOR CUFF SYNDROME [None]
  - TENDON RUPTURE [None]
  - BURSA DISORDER [None]
  - TENDON DISORDER [None]
  - TENOSYNOVITIS [None]
